FAERS Safety Report 8802004 (Version 1)
Quarter: 2012Q4

REPORT INFORMATION
  Report Type: 
  Country: AU (occurrence: AU)
  Receive Date: 20120921
  Receipt Date: 20120921
  Transmission Date: 20130627
  Serious: Yes (Other)
  Sender: FDA-Public Use
  Company Number: PHHY2012AU081304

PATIENT
  Age: 25 Year
  Sex: Female

DRUGS (1)
  1. CICLOSPORIN [Suspect]

REACTIONS (5)
  - Hypotension [Unknown]
  - Tachycardia [Unknown]
  - Headache [Unknown]
  - Pyrexia [Unknown]
  - Rash [Unknown]
